FAERS Safety Report 5594906-8 (Version None)
Quarter: 2007Q4

REPORT INFORMATION
  Report Type: 
  Country: None (occurrence: None)
  Receive Date: 20071218
  Receipt Date: 20070716
  Transmission Date: 20080405
  Serious: Yes (Hospitalization, Other)
  Sender: FDA-Public Use
  Company Number: 2006118965

PATIENT
  Age: 62 Year
  Sex: Male
  Weight: 99.8 kg

DRUGS (3)
  1. BEXTRA [Suspect]
     Indication: PAIN
     Dosage: 10 MG (10 MG,1 IN 1 D)
     Dates: start: 20041007
  2. VIOXX [Suspect]
     Indication: INFLAMMATION
     Dosage: 75 MG (1 IN 1 D)
     Dates: start: 20010823, end: 20040930
  3. DARVOCET [Concomitant]

REACTIONS (1)
  - MYOCARDIAL INFARCTION [None]
